FAERS Safety Report 4407454-5 (Version None)
Quarter: 2004Q3

REPORT INFORMATION
  Report Type: 
  Country: None (occurrence: None)
  Receive Date: 20040721
  Receipt Date: 20040712
  Transmission Date: 20050211
  Serious: Yes (Hospitalization)
  Sender: FDA-Public Use
  Company Number: 2004223395US

PATIENT

DRUGS (1)
  1. CELEBREX [Suspect]

REACTIONS (1)
  - HAEMORRHAGE [None]
